FAERS Safety Report 9258422 (Version 2)
Quarter: 2014Q1

REPORT INFORMATION
  Report Type: Spontaneous
  Country: US (occurrence: None)
  Receive Date: 20121212
  Receipt Date: 20130314
  Transmission Date: 20141002
  Serious: No
  Sender: FDA-Public Use
  Company Number: 1211USA000034

PATIENT
  Age: 63 Year
  Sex: Male

DRUGS (3)
  1. VICTRELIS [Suspect]
     Indication: HEPATITIS C
     Route: 048
     Dates: start: 20121030
  2. PEGASYS [Concomitant]
     Route: 058
     Dates: start: 20121030
  3. RIBASPHERE [Concomitant]
     Dates: start: 20121002

REACTIONS (2)
  - Fatigue [None]
  - Dyspnoea [None]
